FAERS Safety Report 10207036 (Version 2)
Quarter: 2014Q2

REPORT INFORMATION
  Report Type: Spontaneous
  Country: US (occurrence: US)
  Receive Date: 20140530
  Receipt Date: 20140530
  Transmission Date: 20141212
  Serious: Yes (Death)
  Sender: FDA-Public Use
  Company Number: US-009507513-1210USA003808

PATIENT
  Age: 61 Year
  Sex: Female

DRUGS (8)
  1. PEG-INTRON [Suspect]
     Indication: CHRONIC HEPATITIS C
     Dosage: 120 MICROGRAM/ 0.5 ML, QW
     Route: 058
     Dates: start: 20120515, end: 201212
  2. PEG-INTRON [Suspect]
     Indication: COMA HEPATIC
  3. ASPIRIN [Concomitant]
  4. CALCIUM (UNSPECIFIED) (+) VITAMIN D (UNSPECIFIED) [Concomitant]
  5. GLIPIZIDE [Concomitant]
  6. METFORMIN [Concomitant]
  7. NEURONTIN [Concomitant]
  8. VITAMIN D (UNSPECIFIED) [Concomitant]

REACTIONS (2)
  - Death [Fatal]
  - Underdose [Unknown]
